FAERS Safety Report 7388014-3 (Version None)
Quarter: 2011Q1

REPORT INFORMATION
  Report Type: 
  Country: None (occurrence: None)
  Receive Date: 20110322
  Receipt Date: 20100205
  Transmission Date: 20110831
  Serious: Yes (Death, Hospitalization)
  Sender: FDA-Public Use
  Company Number: 2010SP003108

PATIENT
  Age: 42 Year
  Sex: Male
  Weight: 69 kg

DRUGS (2)
  1. RIBAVIRIN [Suspect]
     Indication: HEPATITIS C
     Dosage: 1000 MG, QD
     Dates: start: 20080417
  2. PEGINTERFERON ALFA-2B (PEGINTERFERON ALBA-2B) /01543001/) [Suspect]
     Indication: HEPATITIS C
     Dosage: 80 MCG, QW
     Dates: start: 20080417

REACTIONS (4)
  - MENINGITIS CRYPTOCOCCAL [None]
  - PNEUMONIA [None]
  - CD4 LYMPHOCYTES DECREASED [None]
  - DEPRESSED LEVEL OF CONSCIOUSNESS [None]
